FAERS Safety Report 16363324 (Version 1)
Quarter: 2019Q2

REPORT INFORMATION
  Report Type: Other
  Country: None (occurrence: LT)
  Receive Date: 20190528
  Receipt Date: 20190528
  Transmission Date: 20190711
  Serious: Yes (Other)
  Sender: FDA-Public Use
  Company Number: LT-LABORATOIRE HRA PHARMA-2067492

PATIENT
  Age: 31 Year
  Sex: Female
  Weight: 63 kg

DRUGS (1)
  1. ELLA [Suspect]
     Active Substance: ULIPRISTAL ACETATE
     Indication: POST COITAL CONTRACEPTION
     Route: 048
     Dates: start: 20190311, end: 20190311

REACTIONS (4)
  - Unintended pregnancy [None]
  - Abortion induced [None]
  - Post abortion complication [None]
  - Hormone level abnormal [None]

NARRATIVE: CASE EVENT DATE: 20190405
